FAERS Safety Report 15701154 (Version 1)
Quarter: 2018Q4

REPORT INFORMATION
  Report Type: Spontaneous
  Country: IT (occurrence: IT)
  Receive Date: 20181207
  Receipt Date: 20181207
  Transmission Date: 20190205
  Serious: Yes (Hospitalization)
  Sender: FDA-Public Use
  Company Number: PHHY2018IT176808

PATIENT
  Age: 27 Year
  Sex: Male

DRUGS (2)
  1. AMOXICILLIN. [Suspect]
     Active Substance: AMOXICILLIN
     Indication: STAPHYLOCOCCAL IMPETIGO
     Dosage: UNK
     Route: 048
  2. FUCIDIN [Suspect]
     Active Substance: FUSIDATE SODIUM
     Indication: STAPHYLOCOCCAL IMPETIGO
     Dosage: UNK
     Route: 061

REACTIONS (1)
  - Eyelid oedema [Not Recovered/Not Resolved]

NARRATIVE: CASE EVENT DATE: 20180810
